FAERS Safety Report 9069304 (Version 1)
Quarter: 2013Q1

REPORT INFORMATION
  Report Type: Report from Study
  Country: US (occurrence: US)
  Receive Date: 20130131
  Receipt Date: 20130131
  Transmission Date: 20140127
  Serious: No
  Sender: FDA-Public Use
  Company Number: US-ABBOTT-12P-163-0927279-00

PATIENT
  Age: 21 Year
  Sex: Female

DRUGS (15)
  1. HUMIRA [Suspect]
     Indication: CROHN^S DISEASE
     Dates: start: 201201, end: 201202
  2. HUMIRA [Suspect]
     Dates: start: 20120418
  3. SOAP [Suspect]
     Indication: PRODUCT USED FOR UNKNOWN INDICATION
  4. NEOSPORIN [Suspect]
     Indication: PRODUCT USED FOR UNKNOWN INDICATION
  5. HYDROGEN PEROXIDE [Suspect]
     Indication: PRODUCT USED FOR UNKNOWN INDICATION
  6. CITALOPRAM [Concomitant]
     Indication: PANIC DISORDER
  7. CITALOPRAM [Concomitant]
     Indication: DEPRESSION
  8. CITALOPRAM [Concomitant]
     Indication: ANXIETY
  9. MULTIVITAMIN [Concomitant]
     Indication: SUPPLEMENTATION THERAPY
  10. LOPERAMIDE [Concomitant]
     Indication: DIARRHOEA
     Route: 048
  11. LIDOCAINE [Concomitant]
     Indication: MUSCULOSKELETAL PAIN
     Dosage: 2% TOPICAL GEL, AS REQUIRED
     Route: 061
  12. MECLIZINE [Concomitant]
     Indication: VERTIGO
     Route: 048
  13. ZYRTEC [Concomitant]
     Indication: SEASONAL ALLERGY
     Route: 048
  14. STRATTERA [Concomitant]
     Indication: ATTENTION DEFICIT/HYPERACTIVITY DISORDER
  15. ZANTAC [Concomitant]
     Indication: GASTROOESOPHAGEAL REFLUX DISEASE
     Dosage: 2 DAILY
     Route: 048

REACTIONS (30)
  - Vulvovaginal pruritus [Recovering/Resolving]
  - Drug dose omission [Not Recovered/Not Resolved]
  - Crohn^s disease [Not Recovered/Not Resolved]
  - Injection site pain [Unknown]
  - Diarrhoea [Not Recovered/Not Resolved]
  - Abdominal pain upper [Not Recovered/Not Resolved]
  - Proctalgia [Not Recovered/Not Resolved]
  - Unevaluable event [Not Recovered/Not Resolved]
  - Vulvovaginal mycotic infection [Unknown]
  - Vaginal discharge [Recovering/Resolving]
  - Vulvovaginal discomfort [Recovering/Resolving]
  - Infected bites [Recovering/Resolving]
  - Cervix erythema [Recovering/Resolving]
  - Cervix oedema [Recovering/Resolving]
  - Joint swelling [Recovering/Resolving]
  - Blister [Not Recovered/Not Resolved]
  - Rash papular [Not Recovered/Not Resolved]
  - Rash pustular [Not Recovered/Not Resolved]
  - Scar [Unknown]
  - Cervical friability [Not Recovered/Not Resolved]
  - Pruritus [Not Recovered/Not Resolved]
  - Condition aggravated [Not Recovered/Not Resolved]
  - Rash pruritic [Not Recovered/Not Resolved]
  - Skin exfoliation [Not Recovered/Not Resolved]
  - Scab [Not Recovered/Not Resolved]
  - Skin burning sensation [Not Recovered/Not Resolved]
  - Secretion discharge [Unknown]
  - Condition aggravated [Unknown]
  - Wound infection staphylococcal [Unknown]
  - Impaired healing [Unknown]
